FAERS Safety Report 15665145 (Version 1)
Quarter: 2018Q4

REPORT INFORMATION
  Report Type: Spontaneous
  Country: DE (occurrence: DE)
  Receive Date: 20181128
  Receipt Date: 20181128
  Transmission Date: 20190205
  Serious: Yes (Other)
  Sender: FDA-Public Use
  Company Number: DE-ROCHE-2221167

PATIENT
  Age: 35 Year
  Sex: Male

DRUGS (10)
  1. TEGRETAL [Interacting]
     Active Substance: CARBAMAZEPINE
     Indication: PRODUCT USED FOR UNKNOWN INDICATION
     Route: 065
     Dates: start: 19991101
  2. TEGRETAL [Interacting]
     Active Substance: CARBAMAZEPINE
     Route: 065
     Dates: start: 19991030
  3. METHADONE [Interacting]
     Active Substance: METHADONE HYDROCHLORIDE
     Indication: PRODUCT USED FOR UNKNOWN INDICATION
     Route: 065
     Dates: start: 19991031
  4. DIAZEPAM. [Interacting]
     Active Substance: DIAZEPAM
     Route: 065
     Dates: start: 19991101
  5. ZYPREXA [Interacting]
     Active Substance: OLANZAPINE
     Indication: PRODUCT USED FOR UNKNOWN INDICATION
     Route: 065
     Dates: start: 19991031
  6. DIAZEPAM. [Suspect]
     Active Substance: DIAZEPAM
     Indication: PRODUCT USED FOR UNKNOWN INDICATION
     Route: 065
     Dates: start: 19991030
  7. METHADONE [Interacting]
     Active Substance: METHADONE HYDROCHLORIDE
     Route: 065
     Dates: start: 19991029
  8. METHADONE [Interacting]
     Active Substance: METHADONE HYDROCHLORIDE
     Route: 065
     Dates: start: 19991030
  9. TEGRETAL [Interacting]
     Active Substance: CARBAMAZEPINE
     Route: 065
     Dates: start: 19991031
  10. DIAZEPAM. [Interacting]
     Active Substance: DIAZEPAM
     Route: 065
     Dates: start: 19991031

REACTIONS (4)
  - Altered state of consciousness [Recovered/Resolved]
  - Psychomotor retardation [Recovered/Resolved]
  - Somnolence [Recovered/Resolved]
  - Dysarthria [Recovered/Resolved]

NARRATIVE: CASE EVENT DATE: 19991031
